FAERS Safety Report 17703718 (Version 3)
Quarter: 2020Q2

REPORT INFORMATION
  Report Type: Report from Study
  Country: CA (occurrence: CA)
  Receive Date: 20200424
  Receipt Date: 20200511
  Transmission Date: 20200714
  Serious: Yes (Other)
  Sender: FDA-Public Use
  Company Number: CA-GLAXOSMITHKLINE-CA2020AMR069307

PATIENT
  Age: 31 Year
  Sex: Male
  Weight: 119 kg

DRUGS (6)
  1. VENTOLIN [Suspect]
     Active Substance: ALBUTEROL SULFATE
     Indication: PRODUCT USED FOR UNKNOWN INDICATION
     Dosage: UNK, 34 TIMES A DAY
  2. CEFUROXIME. [Suspect]
     Active Substance: CEFUROXIME
     Indication: PRODUCT USED FOR UNKNOWN INDICATION
     Dosage: 500 MG, BID
  3. SINGULAIR [Suspect]
     Active Substance: MONTELUKAST SODIUM
     Indication: PRODUCT USED FOR UNKNOWN INDICATION
     Dosage: UNK
  4. RUPATADIN [Suspect]
     Active Substance: RUPATADINE
     Indication: PRODUCT USED FOR UNKNOWN INDICATION
     Dosage: UNK
  5. SYMBICORT [Suspect]
     Active Substance: BUDESONIDE\FORMOTEROL FUMARATE DIHYDRATE
     Indication: PRODUCT USED FOR UNKNOWN INDICATION
     Dosage: 2 DF, TID, 2 INHALATIONS
  6. MEPOLIZUMAB [Suspect]
     Active Substance: MEPOLIZUMAB
     Indication: ASTHMA
     Dosage: 100 MG, Z (MONTHLY)
     Route: 042
     Dates: start: 20200229

REACTIONS (30)
  - Adverse reaction [Recovering/Resolving]
  - Petechiae [Recovering/Resolving]
  - Dyspepsia [Unknown]
  - Purpura [Unknown]
  - Rash [Unknown]
  - Sleep apnoea syndrome [Unknown]
  - Urine abnormality [Unknown]
  - Joint stiffness [Unknown]
  - Hypersensitivity [Unknown]
  - Headache [Unknown]
  - Erythema [Unknown]
  - Skin lesion [Unknown]
  - Skin burning sensation [Unknown]
  - Joint swelling [Unknown]
  - Monocyte count increased [Unknown]
  - Cellulitis [Unknown]
  - Chills [Not Recovered/Not Resolved]
  - Arthralgia [Unknown]
  - Paronychia [Unknown]
  - Obesity [Unknown]
  - Oropharyngeal pain [Unknown]
  - Mobility decreased [Unknown]
  - Peripheral swelling [Unknown]
  - Myalgia [Unknown]
  - Vasculitis [Unknown]
  - Serum sickness [Unknown]
  - Autoimmune haemolytic anaemia [Unknown]
  - Fatigue [Unknown]
  - Folliculitis [Unknown]
  - Panic reaction [Unknown]

NARRATIVE: CASE EVENT DATE: 201601
